FAERS Safety Report 13356454 (Version 3)
Quarter: 2017Q2

REPORT INFORMATION
  Report Type: Spontaneous
  Country: DE (occurrence: DE)
  Receive Date: 20170321
  Receipt Date: 20170620
  Transmission Date: 20170830
  Serious: Yes (Other)
  Sender: FDA-Public Use
  Company Number: DE-MERCK KGAA-1064481

PATIENT
  Sex: Female

DRUGS (6)
  1. NOVOTHYROX [Suspect]
     Active Substance: LEVOTHYROXINE SODIUM
     Indication: PRODUCT USED FOR UNKNOWN INDICATION
  2. METFORMIN [Concomitant]
     Active Substance: METFORMIN HYDROCHLORIDE
  3. SPRAY AGAINST ALLERGIC ASTHMA [Concomitant]
  4. NOVOTHYROX [Suspect]
     Active Substance: LEVOTHYROXINE SODIUM
  5. BLOOD PRESSURE TABLETS [Concomitant]
  6. METFORMIN [Concomitant]
     Active Substance: METFORMIN HYDROCHLORIDE

REACTIONS (7)
  - Eye pain [Unknown]
  - Feeling cold [Unknown]
  - Blood glucose increased [Recovered/Resolved]
  - Dizziness [Unknown]
  - Headache [Unknown]
  - Eye haemorrhage [Unknown]
  - Night sweats [Unknown]
